FAERS Safety Report 18866092 (Version 1)
Quarter: 2021Q1

REPORT INFORMATION
  Report Type: Spontaneous
  Country: US (occurrence: US)
  Receive Date: 20210209
  Receipt Date: 20210209
  Transmission Date: 20210420
  Serious: Yes (Hospitalization)
  Sender: FDA-Public Use
  Company Number: None

PATIENT
  Age: 67 Year
  Sex: Male
  Weight: 89.5 kg

DRUGS (2)
  1. DAUNORUBICIN 250MG [Suspect]
     Active Substance: DAUNORUBICIN
     Dates: end: 20201205
  2. CYTARABINE (63878)1248 MG [Suspect]
     Active Substance: CYTARABINE
     Dates: end: 20201210

REACTIONS (6)
  - Speech disorder [None]
  - Subdural haematoma [None]
  - Thrombocytopenia [None]
  - Fall [None]
  - Pyrexia [None]
  - Lung infiltration [None]

NARRATIVE: CASE EVENT DATE: 20210102
